FAERS Safety Report 7050507-6 (Version None)
Quarter: 2010Q4

REPORT INFORMATION
  Report Type: 
  Country: None (occurrence: None)
  Receive Date: 20101018
  Receipt Date: 20101012
  Transmission Date: 20110411
  Serious: Yes (Hospitalization)
  Sender: FDA-Public Use
  Company Number: FR-GILEAD-2010-0032517

PATIENT
  Sex: Male

DRUGS (3)
  1. TRUVADA [Suspect]
     Indication: HIV INFECTION
     Route: 048
  2. REYATAZ [Suspect]
  3. NORVIR [Suspect]
     Route: 048

REACTIONS (2)
  - RENAL COLIC [None]
  - RENAL FAILURE [None]
